FAERS Safety Report 8459534-5 (Version None)
Quarter: 2012Q2

REPORT INFORMATION
  Report Type: 
  Country: None (occurrence: None)
  Receive Date: 20120622
  Receipt Date: 20120619
  Transmission Date: 20120825
  Serious: Yes (Other)
  Sender: FDA-Public Use
  Company Number: US-PFIZER INC-2012130551

PATIENT
  Sex: Female

DRUGS (5)
  1. SYNTHROID [Concomitant]
     Dosage: UNK
  2. NICOTROL [Suspect]
     Dosage: 10 MG 1 PUFF UP TO 10 TIMES DAILY
     Route: 055
  3. VITAMIN D [Concomitant]
     Dosage: UNK
  4. DOXYCYCLINE [Concomitant]
     Dosage: UNK
  5. MULTI-VITAMINS [Concomitant]
     Dosage: UNK

REACTIONS (2)
  - ACTIVITIES OF DAILY LIVING IMPAIRED [None]
  - INFLAMMATORY CARCINOMA OF THE BREAST [None]
